FAERS Safety Report 23261303 (Version 1)
Quarter: 2023Q4

REPORT INFORMATION
  Report Type: Spontaneous
  Country: US (occurrence: US)
  Receive Date: 20231205
  Receipt Date: 20231205
  Transmission Date: 20240110
  Serious: Yes (Hospitalization)
  Sender: FDA-Public Use
  Company Number: US-SA-SAC20231204000134

PATIENT
  Age: 34 Year
  Sex: Female

DRUGS (13)
  1. DUPIXENT [Suspect]
     Active Substance: DUPILUMAB
     Indication: Nasal polyps
     Dosage: 300 MG, QOW
     Route: 058
     Dates: start: 20220513
  2. AMLODIPINE [Concomitant]
     Active Substance: AMLODIPINE BESYLATE
  3. AURYXIA [Concomitant]
     Active Substance: TETRAFERRIC TRICITRATE DECAHYDRATE
  4. AZITHROMYCIN [Concomitant]
     Active Substance: AZITHROMYCIN
  5. CLONIDINE [Concomitant]
     Active Substance: CLONIDINE
  6. FUROSEMIDE [Concomitant]
     Active Substance: FUROSEMIDE
  7. GABAPENTIN [Concomitant]
     Active Substance: GABAPENTIN
  8. LABETALOL [Concomitant]
     Active Substance: LABETALOL\LABETALOL HYDROCHLORIDE
  9. LOSARTAN POTASSIUM [Concomitant]
     Active Substance: LOSARTAN POTASSIUM
  10. NOVOLOG [Concomitant]
     Active Substance: INSULIN ASPART
  11. BUDESONIDE\FORMOTEROL [Concomitant]
     Active Substance: BUDESONIDE\FORMOTEROL
  12. PROCHLORPERAZINE [Concomitant]
     Active Substance: PROCHLORPERAZINE
  13. ACETAMINOPHEN\HYDROCODONE [Concomitant]
     Active Substance: ACETAMINOPHEN\HYDROCODONE

REACTIONS (3)
  - Fistula [Unknown]
  - Impaired quality of life [Unknown]
  - Drug ineffective [Unknown]
